FAERS Safety Report 9725506 (Version 2)
Quarter: 2014Q1

REPORT INFORMATION
  Report Type: Report from Study
  Country: AU (occurrence: AU)
  Receive Date: 20131203
  Receipt Date: 20140122
  Transmission Date: 20141002
  Serious: Yes (Hospitalization, Other)
  Sender: FDA-Public Use
  Company Number: PHHY2013AU139254

PATIENT
  Age: 54 Year
  Sex: Female

DRUGS (5)
  1. AFINITOR [Suspect]
     Dosage: 10 MG, QD
     Route: 048
     Dates: end: 20131031
  2. EXEMESTANE [Concomitant]
     Dosage: 25 MG, QD
     Route: 048
  3. ZOMETA [Concomitant]
     Dosage: 4 MG, QMO
     Route: 042
     Dates: start: 201306
  4. OXYCODONE [Concomitant]
     Dosage: 5 MG, PRN
  5. OXYCONTIN [Concomitant]
     Dosage: 10 MG, UNK
     Route: 048

REACTIONS (6)
  - Cardiac failure [Recovered/Resolved]
  - Sepsis [Recovered/Resolved]
  - Lung infiltration [Recovered/Resolved]
  - Liver function test abnormal [Not Recovered/Not Resolved]
  - Fatigue [Recovering/Resolving]
  - Pulmonary oedema [Unknown]
